FAERS Safety Report 10651561 (Version 2)
Quarter: 2015Q1

REPORT INFORMATION
  Report Type: Spontaneous
  Country: US (occurrence: US)
  Receive Date: 20141215
  Receipt Date: 20150226
  Transmission Date: 20150720
  Serious: No
  Sender: FDA-Public Use
  Company Number: US-ASTRAZENECA-2014SE94282

PATIENT
  Sex: Male

DRUGS (1)
  1. SYMBICORT [Suspect]
     Active Substance: BUDESONIDE\FORMOTEROL FUMARATE DIHYDRATE
     Indication: ASTHMA
     Dosage: 80/4.5 MCG, AS REQIRED
     Route: 055

REACTIONS (3)
  - Drug dose omission [Not Recovered/Not Resolved]
  - Dyspnoea [Unknown]
  - Intentional product misuse [Not Recovered/Not Resolved]
